FAERS Safety Report 7334026-5 (Version None)
Quarter: 2011Q1

REPORT INFORMATION
  Report Type: 
  Country: None (occurrence: None)
  Receive Date: 20110301
  Receipt Date: 20110301
  Transmission Date: 20110831
  Serious: Yes (Other)
  Sender: FDA-Public Use
  Company Number: None

PATIENT
  Sex: Female
  Weight: 115.6672 kg

DRUGS (1)
  1. METOPROLOL TARTRATE [Suspect]

REACTIONS (3)
  - NAUSEA [None]
  - DIZZINESS [None]
  - BLOOD PRESSURE INCREASED [None]
